FAERS Safety Report 6020095-1 (Version None)
Quarter: 2008Q4

REPORT INFORMATION
  Report Type: 
  Country: None (occurrence: None)
  Receive Date: 20081226
  Receipt Date: 20081216
  Transmission Date: 20090506
  Serious: Yes (Hospitalization)
  Sender: FDA-Public Use
  Company Number: FR-BAYER-200832949GPV

PATIENT
  Age: 63 Year
  Sex: Male

DRUGS (3)
  1. IZILOX [Suspect]
     Indication: PROSTATITIS
     Dosage: TOTAL DAILY DOSE: 400 MG  UNIT DOSE: 400 MG
     Route: 048
     Dates: start: 20081108, end: 20081115
  2. BIPROFENID [Suspect]
     Indication: ARTHRITIS
     Dosage: TOTAL DAILY DOSE: 300 MG
     Route: 048
     Dates: start: 20071001, end: 20081117
  3. PARACETAMOL [Suspect]
     Indication: ARTHRITIS
     Dosage: TOTAL DAILY DOSE: 3 G
     Route: 048
     Dates: start: 20071001, end: 20081117

REACTIONS (1)
  - CYTOLYTIC HEPATITIS [None]
